FAERS Safety Report 9762781 (Version 1)
Quarter: 2013Q4

REPORT INFORMATION
  Report Type: Spontaneous
  Country: TW (occurrence: TW)
  Receive Date: 20131216
  Receipt Date: 20131216
  Transmission Date: 20140711
  Serious: Yes (Death, Other)
  Sender: FDA-Public Use
  Company Number: PHHY2013TW145132

PATIENT
  Age: 47 Year
  Sex: Male

DRUGS (8)
  1. CLOZAPINE [Suspect]
     Indication: PSYCHOTIC DISORDER
     Dosage: 25 MG, PER DAY
  2. CLOZAPINE [Suspect]
     Dosage: 50 MG, PER DAY
  3. CLOZAPINE [Suspect]
     Dosage: 100 MG, PER DAY
  4. CLOZAPINE [Suspect]
     Dosage: 200 MG, PER DAY
  5. VALPROIC ACID [Concomitant]
     Indication: PSYCHOTIC DISORDER
     Dosage: 800 MG, PER DAY
  6. VALPROIC ACID [Concomitant]
     Dosage: 1200 MG, PER DAY
  7. VALPROIC ACID [Concomitant]
     Dosage: 1500 MG, PER DAY
  8. AMISULPRIDE [Concomitant]
     Indication: PSYCHOTIC DISORDER

REACTIONS (13)
  - Intestinal infarction [Fatal]
  - Sepsis [Fatal]
  - Peritonitis bacterial [Unknown]
  - Vomiting [Unknown]
  - Decreased appetite [Unknown]
  - Abdominal pain [Unknown]
  - Fatigue [Unknown]
  - Colitis ischaemic [Unknown]
  - Metabolic acidosis [Unknown]
  - Mesenteric arterial occlusion [Unknown]
  - Ileus [Unknown]
  - Abnormal behaviour [Unknown]
  - Agitation [Unknown]
